FAERS Safety Report 6837877-6 (Version None)
Quarter: 2010Q3

REPORT INFORMATION
  Report Type: 
  Country: None (occurrence: None)
  Receive Date: 20100709
  Receipt Date: 20100624
  Transmission Date: 20110219
  Serious: Yes (Other)
  Sender: FDA-Public Use
  Company Number: CV20100325

PATIENT
  Age: 61 Year
  Sex: Male

DRUGS (3)
  1. PROPOFOL [Suspect]
     Indication: SEDATIVE THERAPY
     Dosage: 80 MG
     Dates: start: 20100330
  2. SPIRONOLACTON HEXAL (SPIRONOLACTONE) (SPIRONOLACTONE) [Concomitant]
  3. HEXAL (SPIRONOLACTONE) (SPIRONOLACTONE) [Concomitant]

REACTIONS (11)
  - CARDIAC FAILURE [None]
  - CONDITION AGGRAVATED [None]
  - CONTRAST MEDIA REACTION [None]
  - DIABETIC NEPHROPATHY [None]
  - DIALYSIS [None]
  - HYPERKALAEMIA [None]
  - NEPHROPATHY [None]
  - OEDEMA [None]
  - RENAL FAILURE ACUTE [None]
  - RENAL FAILURE CHRONIC [None]
  - WEIGHT INCREASED [None]
